FAERS Safety Report 8202317-1 (Version None)
Quarter: 2012Q1

REPORT INFORMATION
  Report Type: 
  Country: None (occurrence: None)
  Receive Date: 20120312
  Receipt Date: 20110407
  Transmission Date: 20120608
  Serious: Yes (Other)
  Sender: FDA-Public Use
  Company Number: US-ABBOTT-11P-163-0715624-00

PATIENT
  Sex: Female
  Weight: 61.29 kg

DRUGS (2)
  1. VALPROIC ACID GEL [Concomitant]
     Indication: PRODUCT USED FOR UNKNOWN INDICATION
  2. DEPAKOTE [Suspect]
     Indication: CONVULSION
     Dates: start: 20070101, end: 20110330

REACTIONS (1)
  - CONVULSION [None]
